FAERS Safety Report 23669331 (Version 7)
Quarter: 2024Q4

REPORT INFORMATION
  Report Type: Report from Study
  Country: US (occurrence: US)
  Receive Date: 20240325
  Receipt Date: 20241226
  Transmission Date: 20250115
  Serious: No
  Sender: DECIPHERA PHARMACEUTICALS
  Company Number: US-DECIPHERA PHARMACEUTICALS LLC-2024US000246

PATIENT
  Age: 84 Year
  Sex: Male
  Weight: 50.5 kg

DRUGS (17)
  1. QINLOCK [Suspect]
     Active Substance: RIPRETINIB
     Indication: Gastrointestinal stromal tumour
     Dosage: 150 MILLIGRAM, QD, TOOK 3 TABLETS (150 MG TOTAL) BY MOUTH (ORAL) EVERY MORNING, TOOK WITH OR WITHOUT
     Route: 048
     Dates: start: 20240304
  2. QINLOCK [Suspect]
     Active Substance: RIPRETINIB
     Dosage: 150 MILLIGRAM, QD
     Route: 048
  3. QINLOCK [Suspect]
     Active Substance: RIPRETINIB
     Dosage: 150 MILLIGRAM, QD
     Route: 048
     Dates: end: 2024
  4. QINLOCK [Suspect]
     Active Substance: RIPRETINIB
     Dosage: 50 MILLIGRAM, QD
     Route: 048
     Dates: start: 2024
  5. QINLOCK [Suspect]
     Active Substance: RIPRETINIB
     Dosage: 50 MILLIGRAM (1 PILL) EVERY 3 DAYS
     Route: 048
     Dates: start: 20240815
  6. QINLOCK [Suspect]
     Active Substance: RIPRETINIB
     Dosage: 150 MILLIGRAM, QD
     Route: 048
  7. QINLOCK [Suspect]
     Active Substance: RIPRETINIB
     Dosage: UNK, 1X A WEEK
  8. NORVASC [Concomitant]
     Active Substance: AMLODIPINE BESYLATE
     Indication: Product used for unknown indication
     Dosage: 5 MILLIGRAM, QD, TOOK 1 TABLET (5 MG TOTAL) BY MOUTH DAILY (ORAL)
     Route: 048
     Dates: start: 20240620
  9. COREG [Concomitant]
     Active Substance: CARVEDILOL
     Indication: Product used for unknown indication
     Dosage: 12.5 MILLIGRAM, BID, TOOK 1 TABLET (12.5 MG TOTAL) BY MOUTH TWO (2) TIMES A DAY (ORAL)
     Route: 048
  10. VITAMIN D3 [Concomitant]
     Active Substance: CHOLECALCIFEROL
     Indication: Product used for unknown indication
     Dosage: 10 MICROGRAM, QD, TOOK 1 TABLET (10 MCG, 400 UNITS TOTAL) BY MOUTH DAILY (ORAL)
     Route: 048
  11. CATAPRES-TTS [Concomitant]
     Active Substance: CLONIDINE
     Indication: Product used for unknown indication
     Dosage: 0.2 MG/24 HR, PLACED 1 PATCH ON THE SKIN ONCE A WEEK (TRANSDERMAL)
     Route: 062
  12. CATAPRES CLONIDINE HYDROCHLORIDE [Concomitant]
     Indication: Product used for unknown indication
     Dosage: 0.1 MILLIGRAM, TOOK 1 TABLET BY MOUTH DAILY AS NEEDED IF SYSTOLIC IS }160
     Route: 048
     Dates: start: 20240823
  13. PROSCAR [Concomitant]
     Active Substance: FINASTERIDE
     Indication: Product used for unknown indication
     Dosage: 5 MILLIGRAM, QD, TOOK 1 TABLET (5 MG TOTAL) BY MOUTH DAILY (ORAL); PATIENT TOOK DIFFERENTLY, TOOK 1
     Route: 048
     Dates: start: 20231227, end: 20241226
  14. FUROSEMIDE\POTASSIUM CHLORIDE [Concomitant]
     Active Substance: FUROSEMIDE\POTASSIUM CHLORIDE
     Indication: Product used for unknown indication
     Dosage: 20 MILLIGRAM, QD, TOOK 1 TABLET (20 MG TOTAL) BY MOUTH (ORAL) DAILY
     Route: 048
  15. APRESOLINE HYDROCHLORIDE [Concomitant]
     Active Substance: HYDRALAZINE HYDROCHLORIDE
     Indication: Product used for unknown indication
     Dosage: 100 MILLIGRAM, TID, 100 MG TABLET; 1 TABLET WITH FOOD ORALLY THREE TIMES A DAY
     Route: 048
  16. CRESTOR [Concomitant]
     Active Substance: ROSUVASTATIN CALCIUM
     Indication: Product used for unknown indication
     Dosage: 10 MILLIGRAM, QD, 10 MG TABLET; TOOK 1 TABLET (10 MG TOTAL) BY MOUTH DAILY (ORAL)
     Route: 048
     Dates: start: 20171124
  17. TAMSULOSIN HYDROCHLORIDE [Concomitant]
     Active Substance: TAMSULOSIN HYDROCHLORIDE
     Indication: Product used for unknown indication
     Dosage: 0.4 MILLIGRAM, QD, TOOK 1 CAPSULE (0.4 MG TOTAL) BY MOUTH (ORAL) EVERY EVENING
     Route: 048
     Dates: start: 20231227, end: 20241226

REACTIONS (10)
  - Vitamin B12 increased [Unknown]
  - Haemoglobin decreased [Unknown]
  - Neoplasm progression [Unknown]
  - Decreased appetite [Recovered/Resolved]
  - Arthritis [Unknown]
  - Fatigue [Unknown]
  - Arthralgia [Unknown]
  - Hypertension [Not Recovered/Not Resolved]
  - Underdose [Unknown]
  - Inappropriate schedule of product administration [Unknown]

NARRATIVE: CASE EVENT DATE: 20240101
